FAERS Safety Report 7776574-X (Version None)
Quarter: 2011Q3

REPORT INFORMATION
  Report Type: 
  Country: None (occurrence: None)
  Receive Date: 20110926
  Receipt Date: 20110916
  Transmission Date: 20111222
  Serious: Yes (Other)
  Sender: FDA-Public Use
  Company Number: CH-JNJFOC-20110906521

PATIENT
  Age: 11 Year
  Sex: Male

DRUGS (2)
  1. RISPERDAL [Suspect]
     Indication: PRODUCT USED FOR UNKNOWN INDICATION
     Dosage: IN THE MORNING
     Route: 048
  2. RISPERDAL [Suspect]
     Dosage: 0.5 MG IN THE MORNING AND 0.25 MG IN THE EVENING
     Route: 048

REACTIONS (2)
  - FATIGUE [None]
  - PSYCHOTIC DISORDER [None]
